FAERS Safety Report 11130769 (Version 2)
Quarter: 2015Q4

REPORT INFORMATION
  Report Type: Other
  Country: GB (occurrence: GB)
  Receive Date: 20150522
  Receipt Date: 20151102
  Transmission Date: 20160304
  Serious: Yes (Hospitalization, Other)
  Sender: FDA-Public Use
  Company Number: GB-CIPLA LTD.-2015GB03899

PATIENT

DRUGS (5)
  1. SERTRALINE [Suspect]
     Active Substance: SERTRALINE HYDROCHLORIDE
     Indication: DEPRESSION
     Dosage: STARTED A FEW WEEKS PREVIOUSLY
     Route: 065
  2. OMEPRAZOLE. [Interacting]
     Active Substance: OMEPRAZOLE
     Indication: HELICOBACTER INFECTION
     Dosage: ONCE DAILY 20 MG REGULAR DOSE, INCREASED TO TWICE DAILY FOR HELICOBACTER ERADICATION
     Route: 048
  3. BENDROFLUAZIDE [Interacting]
     Active Substance: BENDROFLUMETHIAZIDE
     Route: 065
  4. OMEPRAZOLE. [Interacting]
     Active Substance: OMEPRAZOLE
     Indication: GASTROINTESTINAL DISORDER
     Dosage: ONCE DAILY 20 MG REGULAR DOSE, INCREASED TO TWICE DAILY FOR HELICOBACTER ERADICATION
     Route: 048
     Dates: start: 20140317, end: 20140323
  5. TEMAZEPAM. [Concomitant]
     Active Substance: TEMAZEPAM
     Route: 065

REACTIONS (5)
  - Hyponatraemia [Recovered/Resolved]
  - Drug interaction [Unknown]
  - Acute psychosis [Not Recovered/Not Resolved]
  - Seizure [Recovering/Resolving]
  - Urinary tract infection [Recovering/Resolving]

NARRATIVE: CASE EVENT DATE: 20140310
